FAERS Safety Report 26216273 (Version 1)
Quarter: 2025Q4

REPORT INFORMATION
  Report Type: Report from Study
  Country: US (occurrence: US)
  Receive Date: 20251231
  Receipt Date: 20251231
  Transmission Date: 20260117
  Serious: Yes (Other)
  Sender: ALEXION PHARMACEUTICALS
  Company Number: US-AstraZeneca-CH-01022022A

PATIENT
  Sex: Female

DRUGS (1)
  1. OLAPARIB [Suspect]
     Active Substance: OLAPARIB
     Indication: Ovarian cancer
     Dosage: 300 MILLIGRAM, BID
     Route: 061

REACTIONS (9)
  - Pelvic infection [Recovering/Resolving]
  - Product dose omission issue [Recovering/Resolving]
  - Nodule [Recovering/Resolving]
  - Cytopenia [Recovering/Resolving]
  - Diarrhoea [Recovering/Resolving]
  - Nausea [Recovering/Resolving]
  - Dysgeusia [Recovering/Resolving]
  - Asthenia [Recovering/Resolving]
  - Loose tooth [Recovering/Resolving]
